FAERS Safety Report 17297835 (Version 1)
Quarter: 2020Q1

REPORT INFORMATION
  Report Type: Spontaneous
  Country: FR (occurrence: FR)
  Receive Date: 20200122
  Receipt Date: 20200122
  Transmission Date: 20200409
  Serious: Yes (Life-Threatening, Hospitalization)
  Sender: FDA-Public Use
  Company Number: FR-ACCORD-170365

PATIENT
  Age: 83 Year
  Sex: Female
  Weight: 47.1 kg

DRUGS (7)
  1. ALDACTONE [Interacting]
     Active Substance: SPIRONOLACTONE
     Indication: HYPERTENSION
     Dosage: STRENGTH: 25 MG, SCORED FILM-COATED TABLET
     Route: 048
     Dates: end: 20190818
  2. KARDEGIC [Concomitant]
     Active Substance: ASPIRIN DL-LYSINE
     Dosage: STRENGTH: 75 MG, POWDER FOR ORAL SOLUTION IN SACHET-DOSE
  3. BISOCE [Interacting]
     Active Substance: BISOPROLOL
     Indication: HYPERTENSION
     Route: 048
  4. RAMIPRIL. [Suspect]
     Active Substance: RAMIPRIL
     Indication: HYPERTENSION
     Route: 048
  5. ELIQUIS [Concomitant]
     Active Substance: APIXABAN
     Dosage: STRENGTH: 5 MG
  6. ZYMAD [Concomitant]
     Active Substance: CHOLECALCIFEROL
  7. PANTOPRAZOLE [Concomitant]
     Active Substance: PANTOPRAZOLE

REACTIONS (4)
  - Drug interaction [Unknown]
  - Fall [Unknown]
  - Orthostatic hypotension [Recovered/Resolved]
  - Acute kidney injury [Recovered/Resolved]

NARRATIVE: CASE EVENT DATE: 20190818
